FAERS Safety Report 8589345-1 (Version None)
Quarter: 2012Q3

REPORT INFORMATION
  Report Type: 
  Country: None (occurrence: None)
  Receive Date: 20120731
  Receipt Date: 20120716
  Transmission Date: 20120928
  Serious: Yes (Other)
  Sender: FDA-Public Use
  Company Number: JP-2012-15651

PATIENT
  Age: 66 Year
  Sex: Female

DRUGS (5)
  1. EVENING PRIMROSE OIL (EVENING PRIMROSE OIL) [Concomitant]
  2. LERCANIDOINE [Concomitant]
  3. CILOSTAZOL [Suspect]
     Indication: DIABETIC COMPLICATION
     Dosage: 100 MG MILLIGRAM(S), BID, ORAL
     Route: 048
     Dates: start: 20090714
  4. METFORMIN HYDROCHLORIDE [Concomitant]
  5. IRBESARTAN [Concomitant]

REACTIONS (1)
  - MYOCARDIAL INFARCTION [None]
